FAERS Safety Report 7987625-1 (Version None)
Quarter: 2011Q4

REPORT INFORMATION
  Report Type: 
  Country: None (occurrence: None)
  Receive Date: 20111216
  Receipt Date: 20101201
  Transmission Date: 20120403
  Serious: No
  Sender: FDA-Public Use
  Company Number: US-BRISTOL-MYERS SQUIBB COMPANY-15255052

PATIENT
  Age: 54 Year
  Sex: Female

DRUGS (3)
  1. ABILIFY [Suspect]
     Indication: DEPRESSION
     Dosage: AT NIGHT TAKEN 5MG
     Dates: start: 20080101
  2. SEROQUEL [Concomitant]
     Dosage: AT BEDTIME HAS TAKEN 100MG SEROQUEL
  3. XANAX [Concomitant]

REACTIONS (11)
  - BLOOD CHOLESTEROL INCREASED [None]
  - PAIN [None]
  - BLOOD TRIGLYCERIDES INCREASED [None]
  - BLOOD CALCIUM INCREASED [None]
  - ASTHENIA [None]
  - HOT FLUSH [None]
  - LOW DENSITY LIPOPROTEIN INCREASED [None]
  - BRUXISM [None]
  - BLOOD POTASSIUM INCREASED [None]
  - APATHY [None]
  - FATIGUE [None]
